FAERS Safety Report 19456611 (Version 1)
Quarter: 2021Q2

REPORT INFORMATION
  Report Type: Spontaneous
  Country: US (occurrence: US)
  Receive Date: 20210624
  Receipt Date: 20210624
  Transmission Date: 20210717
  Serious: Yes (Hospitalization)
  Sender: FDA-Public Use
  Company Number: None

PATIENT
  Age: 64 Year
  Sex: Male
  Weight: 74 kg

DRUGS (3)
  1. CYTOXAN [Concomitant]
     Active Substance: CYCLOPHOSPHAMIDE
     Dates: start: 20210611, end: 20210612
  2. ABECMA [Suspect]
     Active Substance: IDECABTAGENE VICLEUCEL
     Indication: PLASMA CELL MYELOMA
     Dosage: ?          OTHER FREQUENCY:ONCE;?
     Route: 042
     Dates: start: 20210616, end: 20210616
  3. FLUDARABINE [Concomitant]
     Active Substance: FLUDARABINE PHOSPHATE
     Dates: start: 20210611, end: 20210612

REACTIONS (31)
  - Platelet count decreased [None]
  - Chest pain [None]
  - Tachycardia [None]
  - Blood lactic acid increased [None]
  - Cytokine release syndrome [None]
  - Neurotoxicity [None]
  - Pancytopenia [None]
  - Dyspnoea [None]
  - Gastrointestinal obstruction [None]
  - Product intolerance [None]
  - Lymphopenia [None]
  - Hypoxia [None]
  - Malnutrition [None]
  - Renal impairment [None]
  - Device intolerance [None]
  - Mental status changes [None]
  - Hyperammonaemia [None]
  - Lung opacity [None]
  - Disease recurrence [None]
  - Haematuria [None]
  - Rales [None]
  - Pleural effusion [None]
  - Somnolence [None]
  - Therapeutic response decreased [None]
  - Tachypnoea [None]
  - Acute kidney injury [None]
  - Sepsis [None]
  - Endocarditis [None]
  - Atrial flutter [None]
  - Unresponsive to stimuli [None]
  - Speech disorder [None]

NARRATIVE: CASE EVENT DATE: 20210620
